FAERS Safety Report 11758334 (Version 5)
Quarter: 2018Q2

REPORT INFORMATION
  Report Type: Spontaneous
  Country: US (occurrence: US)
  Receive Date: 20151120
  Receipt Date: 20180518
  Transmission Date: 20180711
  Serious: No
  Sender: FDA-Public Use
  Company Number: US-PFIZER INC-2015398936

PATIENT
  Age: 68 Year
  Sex: Female
  Weight: 51.26 kg

DRUGS (2)
  1. CELEBREX [Concomitant]
     Active Substance: CELECOXIB
     Dosage: UNK
     Dates: end: 20150606
  2. XELJANZ [Suspect]
     Active Substance: TOFACITINIB CITRATE
     Indication: RHEUMATOID ARTHRITIS
     Dosage: 5 MG, 2X/DAY
     Dates: start: 2014

REACTIONS (2)
  - Abdominal pain upper [Unknown]
  - Gastric disorder [Recovered/Resolved]

NARRATIVE: CASE EVENT DATE: 20151122
